FAERS Safety Report 20330837 (Version 1)
Quarter: 2022Q1

REPORT INFORMATION
  Report Type: Report from Study
  Country: US (occurrence: US)
  Receive Date: 20220113
  Receipt Date: 20220113
  Transmission Date: 20220423
  Serious: Yes (Hospitalization, Other)
  Sender: FDA-Public Use
  Company Number: US-NOVARTISPH-NVSC2022US002538

PATIENT
  Age: 76 Year
  Sex: Male
  Weight: 76.2 kg

DRUGS (1)
  1. ENTRESTO [Suspect]
     Active Substance: SACUBITRIL\VALSARTAN
     Indication: Cardiac failure
     Dosage: 1 DOSAGE FORM, BID
     Route: 048
     Dates: start: 202104

REACTIONS (6)
  - Pneumonia [Unknown]
  - Pulmonary congestion [Unknown]
  - Cough [Unknown]
  - Epistaxis [Unknown]
  - Cardiac dysfunction [Unknown]
  - Renal failure [Unknown]

NARRATIVE: CASE EVENT DATE: 20210601
